FAERS Safety Report 9137305 (Version 1)
Quarter: 2013Q1

REPORT INFORMATION
  Report Type: Spontaneous
  Country: US (occurrence: US)
  Receive Date: 20130219
  Receipt Date: 20130219
  Transmission Date: 20140127
  Serious: No
  Sender: FDA-Public Use
  Company Number: US-BRISTOL-MYERS SQUIBB COMPANY-16499741

PATIENT
  Age: 46 Year
  Sex: Female

DRUGS (1)
  1. ORENCIA FOR INJ [Suspect]
     Indication: RHEUMATOID ARTHRITIS
     Dosage: RECEIVED 3RD INFUSION ON 31MAR2012.LAST INF :13JUN12, 8AUG12
     Route: 042
     Dates: start: 20120302

REACTIONS (4)
  - Headache [Recovered/Resolved]
  - Nausea [Recovering/Resolving]
  - Vomiting [Recovering/Resolving]
  - Urinary tract infection [Unknown]
